FAERS Safety Report 4784482-1 (Version None)
Quarter: 2005Q3

REPORT INFORMATION
  Report Type: 
  Country: None (occurrence: None)
  Receive Date: 20050930
  Receipt Date: 20050922
  Transmission Date: 20060218
  Serious: Yes (Other)
  Sender: FDA-Public Use
  Company Number: 2005PK01749

PATIENT
  Age: 24 Year
  Sex: Male
  Weight: 72 kg

DRUGS (3)
  1. NEXIUM [Suspect]
     Indication: PROPHYLAXIS
     Route: 048
     Dates: start: 20040101, end: 20040101
  2. INDOCID [Suspect]
     Indication: PAIN
     Route: 048
     Dates: start: 20040716, end: 20040718
  3. DAFALGAN [Suspect]
     Indication: PAIN
     Route: 048
     Dates: start: 20040101, end: 20040101

REACTIONS (2)
  - DYSGEUSIA [None]
  - PAROSMIA [None]
